FAERS Safety Report 20979954 (Version 1)
Quarter: 2022Q2

REPORT INFORMATION
  Report Type: Spontaneous
  Country: US (occurrence: US)
  Receive Date: 20220620
  Receipt Date: 20220620
  Transmission Date: 20220721
  Serious: Yes (Other)
  Sender: FDA-Public Use
  Company Number: US-BRISTOL-MYERS SQUIBB COMPANY-2022-056853

PATIENT
  Age: 80 Year
  Sex: Male
  Weight: 62.14 kg

DRUGS (1)
  1. ELIQUIS [Suspect]
     Active Substance: APIXABAN
     Indication: Cerebrovascular accident prophylaxis
     Dosage: DOSE : 1 TABLET;     FREQ : TWICE DAILY
     Route: 065
     Dates: start: 201709

REACTIONS (1)
  - Gastrointestinal disorder [Unknown]
